FAERS Safety Report 20195608 (Version 1)
Quarter: 2021Q4

REPORT INFORMATION
  Report Type: Spontaneous
  Country: NO (occurrence: NO)
  Receive Date: 20211216
  Receipt Date: 20211216
  Transmission Date: 20220304
  Serious: Yes (Life-Threatening, Other)
  Sender: FDA-Public Use
  Company Number: None

PATIENT
  Age: 94 Year
  Sex: Female

DRUGS (16)
  1. CELEBRA [Interacting]
     Active Substance: CELECOXIB
     Indication: Postoperative analgesia
     Dosage: 200 MG 1-2 TIMES DAILY AS NEEDED
     Route: 048
     Dates: start: 20211108, end: 20211121
  2. CELEBRA [Interacting]
     Active Substance: CELECOXIB
     Indication: Arthritis
  3. ASPIRIN\MAGNESIUM OXIDE [Interacting]
     Active Substance: ASPIRIN\MAGNESIUM OXIDE
     Indication: Postoperative care
     Dosage: 50 MG, 1X/DAY
     Route: 048
     Dates: start: 20211108, end: 20211121
  4. PREDNISOLONE [Interacting]
     Active Substance: PREDNISOLONE
     Indication: Rheumatoid arthritis
     Dosage: 5 MG, 1X/DAY
     Route: 048
  5. CALCIUM CARBONATE\CHOLECALCIFEROL [Concomitant]
     Active Substance: CALCIUM CARBONATE\CHOLECALCIFEROL
  6. AERIUS (DESLORATADINE) [Concomitant]
     Active Substance: DESLORATADINE
  7. LEVOTHYROXINE SODIUM [Concomitant]
     Active Substance: LEVOTHYROXINE SODIUM
  8. OXAZEPAM [Concomitant]
     Active Substance: OXAZEPAM
  9. PROLIA [Concomitant]
     Active Substance: DENOSUMAB
  10. ZOPICLONE [Concomitant]
     Active Substance: ZOPICLONE
  11. EXELON [Concomitant]
     Active Substance: RIVASTIGMINE TARTRATE
  12. ACETAMINOPHEN [Concomitant]
     Active Substance: ACETAMINOPHEN
  13. PANTOPRAZOLE [Concomitant]
     Active Substance: PANTOPRAZOLE
  14. OXYCODONE HYDROCHLORIDE [Concomitant]
     Active Substance: OXYCODONE HYDROCHLORIDE
  15. CLOMETHIAZOLE [Concomitant]
     Active Substance: CLOMETHIAZOLE
  16. AMLODIPINE [Concomitant]
     Active Substance: AMLODIPINE BESYLATE

REACTIONS (11)
  - Drug interaction [Unknown]
  - Intra-abdominal haemorrhage [Unknown]
  - Circulatory collapse [Unknown]
  - Syncope [Unknown]
  - Blood loss anaemia [Unknown]
  - Ophthalmoplegia [Unknown]
  - Pallor [Unknown]
  - Dysphagia [Unknown]
  - Malaise [Unknown]
  - Peripheral coldness [Unknown]
  - Cerebrovascular accident [Unknown]

NARRATIVE: CASE EVENT DATE: 20211120
